FAERS Safety Report 6715294-7 (Version None)
Quarter: 2010Q2

REPORT INFORMATION
  Report Type: 
  Country: None (occurrence: None)
  Receive Date: 20100507
  Receipt Date: 20100427
  Transmission Date: 20101027
  Serious: Yes (Life-Threatening, Hospitalization)
  Sender: FDA-Public Use
  Company Number: JP-BAYER-200911459BYL

PATIENT
  Age: 63 Year
  Sex: Male
  Weight: 58 kg

DRUGS (1)
  1. NEXAVAR [Suspect]
     Indication: RENAL CELL CARCINOMA
     Dosage: UNIT DOSE: 200 MG
     Route: 048
     Dates: start: 20090421, end: 20090507

REACTIONS (2)
  - MELAENA [None]
  - PLATELET COUNT DECREASED [None]
